FAERS Safety Report 12659625 (Version 2)
Quarter: 2016Q4

REPORT INFORMATION
  Report Type: Report from Study
  Country: MX (occurrence: MX)
  Receive Date: 20160817
  Receipt Date: 20161101
  Transmission Date: 20170207
  Serious: Yes (Disabling, Other)
  Sender: FDA-Public Use
  Company Number: MX-AMGEN-MEXSL2016097762

PATIENT
  Age: 72 Year
  Sex: Female
  Weight: 52 kg

DRUGS (2)
  1. VECTIBIX [Suspect]
     Active Substance: PANITUMUMAB
     Dosage: UNK
     Route: 065
     Dates: start: 20160909
  2. VECTIBIX [Suspect]
     Active Substance: PANITUMUMAB
     Indication: COLORECTAL CANCER METASTATIC
     Dosage: 500 MG, (EVERY 15 DAYS)
     Route: 042
     Dates: start: 201604, end: 2016

REACTIONS (12)
  - Wound infection [Not Recovered/Not Resolved]
  - Oral herpes [Unknown]
  - Skin burning sensation [Unknown]
  - Skin ulcer [Unknown]
  - Acne [Unknown]
  - Fatigue [Not Recovered/Not Resolved]
  - Skin exfoliation [Unknown]
  - Tongue discomfort [Unknown]
  - Onychomadesis [Recovered/Resolved]
  - Rash [Unknown]
  - Eye irritation [Unknown]
  - Malaise [Unknown]

NARRATIVE: CASE EVENT DATE: 2016
